FAERS Safety Report 22897386 (Version 2)
Quarter: 2023Q4

REPORT INFORMATION
  Report Type: Spontaneous
  Country: DK (occurrence: DK)
  Receive Date: 20230902
  Receipt Date: 20231012
  Transmission Date: 20240110
  Serious: Yes (Other)
  Sender: FDA-Public Use
  Company Number: DK-TEVA-2023-DK-2921795

PATIENT
  Age: 27 Year
  Sex: Male

DRUGS (1)
  1. METRONIDAZOLE [Suspect]
     Active Substance: METRONIDAZOLE
     Indication: Tooth infection
     Dosage: IN TOTAL 16
     Route: 065
     Dates: start: 202307, end: 2023

REACTIONS (8)
  - Mental impairment [Not Recovered/Not Resolved]
  - Loss of visual contrast sensitivity [Not Recovered/Not Resolved]
  - Vision blurred [Not Recovered/Not Resolved]
  - Dizziness [Unknown]
  - Head discomfort [Unknown]
  - Dandruff [Unknown]
  - Eye allergy [Unknown]
  - Eye inflammation [Unknown]

NARRATIVE: CASE EVENT DATE: 20230101
